FAERS Safety Report 6595386-6 (Version None)
Quarter: 2010Q1

REPORT INFORMATION
  Report Type: 
  Country: None (occurrence: None)
  Receive Date: 20100223
  Receipt Date: 20100216
  Transmission Date: 20100710
  Serious: Yes (Other)
  Sender: FDA-Public Use
  Company Number: US-BIOGENIDEC-2010BI004988

PATIENT
  Age: 57 Year
  Sex: Female

DRUGS (3)
  1. AVONEX [Suspect]
     Indication: MULTIPLE SCLEROSIS
     Route: 030
     Dates: start: 20090106
  2. GLUCOPHAGE [Concomitant]
     Indication: DIABETES MELLITUS
  3. LIPITOR [Concomitant]
     Indication: LIPIDS INCREASED

REACTIONS (9)
  - BLAST CELL COUNT INCREASED [None]
  - BLOOD GLUCOSE INCREASED [None]
  - EPISTAXIS [None]
  - FATIGUE [None]
  - HYPERTENSION [None]
  - MEGALOBLASTS INCREASED [None]
  - PLATELET COUNT DECREASED [None]
  - RED BLOOD CELL ACANTHOCYTES PRESENT [None]
  - RED BLOOD CELL ELLIPTOCYTES PRESENT [None]
